FAERS Safety Report 11662275 (Version 1)
Quarter: 2015Q4

REPORT INFORMATION
  Report Type: Spontaneous
  Country: GB (occurrence: GB)
  Receive Date: 20151027
  Receipt Date: 20151027
  Transmission Date: 20160304
  Serious: Yes (Hospitalization, Disabling, Other)
  Sender: FDA-Public Use
  Company Number: PHHY2015GB134408

PATIENT
  Age: 26 Year
  Sex: Female

DRUGS (1)
  1. METFORMIN [Suspect]
     Active Substance: METFORMIN HYDROCHLORIDE
     Indication: WEIGHT DECREASED
     Dosage: 1 G, UNK
     Route: 048
     Dates: start: 20130218, end: 20130320

REACTIONS (4)
  - Headache [Unknown]
  - Intracranial pressure increased [Recovered/Resolved with Sequelae]
  - Papilloedema [Unknown]
  - Visual impairment [Not Recovered/Not Resolved]

NARRATIVE: CASE EVENT DATE: 20130328
